FAERS Safety Report 16282058 (Version 3)
Quarter: 2019Q4

REPORT INFORMATION
  Report Type: Report from Study
  Country: CA (occurrence: CA)
  Receive Date: 20190507
  Receipt Date: 20191108
  Transmission Date: 20200122
  Serious: Yes (Hospitalization, Other)
  Sender: FDA-Public Use
  Company Number: CA-GLAXOSMITHKLINE-CA2019GSK079997

PATIENT
  Sex: Female

DRUGS (11)
  1. SALBUTAMOL SULPHATE [Suspect]
     Active Substance: ALBUTEROL SULFATE
     Indication: PRODUCT USED FOR UNKNOWN INDICATION
     Dosage: 2 PUFF(S), UNK; 100 MCG 1 TO 2 PER DAY
     Dates: start: 19990131
  2. SPIRIVA [Suspect]
     Active Substance: TIOTROPIUM BROMIDE MONOHYDRATE
  3. FLOVENT DISKUS [Suspect]
     Active Substance: FLUTICASONE PROPIONATE
     Indication: ASTHMA
     Dosage: 250 ?G, BID
     Dates: start: 20091027
  4. ATROVENT [Suspect]
     Active Substance: IPRATROPIUM BROMIDE
     Indication: CHEST DISCOMFORT
     Dosage: 3 PUFF(S), UNK, 20 MG
  5. ADVAIR HFA [Suspect]
     Active Substance: FLUTICASONE PROPIONATE\SALMETEROL XINAFOATE
     Indication: ASTHMA
     Dosage: 250 ?G, BID
     Dates: start: 20051130
  6. MORPHINE [Suspect]
     Active Substance: MORPHINE
     Indication: ARTHRITIS
  7. MORPHINE [Suspect]
     Active Substance: MORPHINE
     Indication: LIVER DISORDER
  8. CLARITHROMYCIN. [Suspect]
     Active Substance: CLARITHROMYCIN
     Indication: PRODUCT USED FOR UNKNOWN INDICATION
     Dosage: UNK
  9. SYMBICORT [Suspect]
     Active Substance: BUDESONIDE\FORMOTEROL FUMARATE DIHYDRATE
  10. PREDNISONE. [Suspect]
     Active Substance: PREDNISONE
     Indication: PRODUCT USED FOR UNKNOWN INDICATION
     Dosage: 5 MG, QD
  11. MORPHINE [Suspect]
     Active Substance: MORPHINE
     Indication: BACK PAIN
     Dosage: UNK
     Route: 042

REACTIONS (14)
  - Pulmonary embolism [Unknown]
  - Hypersensitivity [Unknown]
  - Liver disorder [Unknown]
  - Back pain [Unknown]
  - Gait inability [Unknown]
  - Dyspnoea [Unknown]
  - Pneumonia [Unknown]
  - Arthritis [Unknown]
  - Psoriasis [Unknown]
  - Pulmonary thrombosis [Unknown]
  - Chest discomfort [Unknown]
  - Rash [Unknown]
  - Asthma [Unknown]
  - Hepatic enzyme increased [Unknown]

NARRATIVE: CASE EVENT DATE: 2011
